FAERS Safety Report 10614589 (Version 5)
Quarter: 2015Q1

REPORT INFORMATION
  Report Type: Spontaneous
  Country: GB (occurrence: GB)
  Receive Date: 20141130
  Receipt Date: 20150330
  Transmission Date: 20150720
  Serious: Yes (Hospitalization)
  Sender: FDA-Public Use
  Company Number: PHHY2014GB152794

PATIENT
  Age: 39 Year
  Sex: Female
  Weight: 82.83 kg

DRUGS (7)
  1. METHOTREXATE [Suspect]
     Active Substance: METHOTREXATE
     Indication: PSORIATIC ARTHROPATHY
     Dosage: 20 MG, QW
     Route: 058
     Dates: start: 200903, end: 200903
  2. OMEPRAZOLE. [Concomitant]
     Active Substance: OMEPRAZOLE
     Indication: PSORIATIC ARTHROPATHY
     Dosage: 20 MG, QD
     Route: 048
     Dates: start: 200902
  3. FOLIC ACID. [Concomitant]
     Active Substance: FOLIC ACID
     Indication: PSORIATIC ARTHROPATHY
     Dosage: 5 MG, QW
     Route: 048
     Dates: start: 200903
  4. PARACETAMOL [Concomitant]
     Active Substance: ACETAMINOPHEN
     Indication: PSORIATIC ARTHROPATHY
     Dosage: 1 G, UNK
     Route: 048
     Dates: start: 200902
  5. CODEINE [Concomitant]
     Active Substance: CODEINE
     Indication: PSORIATIC ARTHROPATHY
     Dosage: 15 MG, UNK
     Route: 065
     Dates: start: 200902
  6. HUMIRA [Suspect]
     Active Substance: ADALIMUMAB
     Indication: PSORIATIC ARTHROPATHY
     Dosage: 40 MG, BIW
     Route: 058
     Dates: start: 201004, end: 20100601
  7. NAPROXEN. [Concomitant]
     Active Substance: NAPROXEN
     Indication: PSORIATIC ARTHROPATHY
     Dosage: 500 MG, BID
     Route: 048
     Dates: start: 200902

REACTIONS (11)
  - Blister [Recovered/Resolved]
  - C-reactive protein increased [Unknown]
  - Peripheral swelling [Recovered/Resolved]
  - Erythema [Recovered/Resolved]
  - Pustular psoriasis [Recovered/Resolved]
  - Skin exfoliation [Recovered/Resolved]
  - Onychomadesis [Recovered/Resolved]
  - White blood cell count increased [Unknown]
  - Skin fissures [Recovered/Resolved]
  - Rash generalised [Recovered/Resolved]
  - Alopecia [Recovered/Resolved]

NARRATIVE: CASE EVENT DATE: 20100601
